FAERS Safety Report 19099832 (Version 3)
Quarter: 2021Q2

REPORT INFORMATION
  Report Type: Report from Study
  Country: KR (occurrence: KR)
  Receive Date: 20210406
  Receipt Date: 20210423
  Transmission Date: 20210717
  Serious: Yes (Life-Threatening, Hospitalization)
  Sender: FDA-Public Use
  Company Number: KR-CELLTRION INC.-2021KR004400

PATIENT

DRUGS (7)
  1. HERZUMA [Suspect]
     Active Substance: TRASTUZUMAB-PKRB
     Indication: SALIVARY GLAND CANCER
     Dosage: 613.5 MG (LOADING DOSE 8 MG/KG, C1D1)
     Route: 042
     Dates: start: 20200818, end: 20200818
  2. HERZUMA [Suspect]
     Active Substance: TRASTUZUMAB-PKRB
     Dosage: 460.2 MG Q3WEEKS
     Route: 042
     Dates: start: 20200908, end: 20210202
  3. VALSARTAN. [Concomitant]
     Active Substance: VALSARTAN
     Indication: HYPERTENSION
     Dosage: 160 MG, QD
     Route: 048
     Dates: start: 2004
  4. HERZUMA [Suspect]
     Active Substance: TRASTUZUMAB-PKRB
     Dosage: 509.4 MG Q3WEEKS
     Route: 042
     Dates: start: 20210223, end: 20210316
  5. ROSUVASTATIN. [Concomitant]
     Active Substance: ROSUVASTATIN
     Indication: HYPERTENSION
     Dosage: 20 MG, QD
     Route: 048
     Dates: start: 2004
  6. EZETIMIBE. [Concomitant]
     Active Substance: EZETIMIBE
     Indication: HYPERTENSION
     Dosage: 10 MG, QD
     Route: 048
     Dates: start: 2004
  7. CHOLINE ALFOSCERATE [Concomitant]
     Active Substance: CHOLINE ALFOSCERATE
     Indication: HYPERTENSION
     Dosage: 400 MG, QD
     Route: 048
     Dates: start: 2004

REACTIONS (2)
  - Ventricular tachycardia [Recovered/Resolved]
  - Off label use [Unknown]

NARRATIVE: CASE EVENT DATE: 20210329
